FAERS Safety Report 8286603-5 (Version None)
Quarter: 2012Q2

REPORT INFORMATION
  Report Type: 
  Country: None (occurrence: None)
  Receive Date: 20120416
  Receipt Date: 20120404
  Transmission Date: 20120825
  Serious: Yes (Other)
  Sender: FDA-Public Use
  Company Number: US-SANOFI-AVENTIS-2012SA023493

PATIENT
  Sex: Female

DRUGS (3)
  1. LANTUS [Suspect]
     Indication: TYPE 2 DIABETES MELLITUS
     Dosage: 90 UNITS IN THE EVENING AND 22 UNITS IN THE MORNING  HER EVENING DOSE WAS MORE OF A SLIDING SCALE
     Route: 058
  2. LANTUS [Suspect]
     Route: 058
  3. NOVOLOG [Concomitant]
     Indication: TYPE 2 DIABETES MELLITUS
     Dosage: BEFORE MEALS

REACTIONS (5)
  - RENAL FAILURE [None]
  - ATRIAL FIBRILLATION [None]
  - CATARACT [None]
  - BLOOD GLUCOSE FLUCTUATION [None]
  - TREMOR [None]
